FAERS Safety Report 10286234 (Version 1)
Quarter: 2014Q3

REPORT INFORMATION
  Report Type: Spontaneous
  Country: NL (occurrence: NL)
  Receive Date: 20140709
  Receipt Date: 20140709
  Transmission Date: 20150326
  Serious: Yes (Death)
  Sender: FDA-Public Use
  Company Number: NL-AMGEN-NLDSP2013094382

PATIENT
  Age: 81 Year
  Sex: Male

DRUGS (1)
  1. NEULASTA [Suspect]
     Active Substance: PEGFILGRASTIM
     Indication: PROPHYLAXIS
     Dosage: 6 MG, 1X1W
     Route: 058
     Dates: start: 20130923, end: 20131230

REACTIONS (1)
  - Death [Fatal]

NARRATIVE: CASE EVENT DATE: 20131230
